FAERS Safety Report 9292267 (Version 4)
Quarter: 2014Q1

REPORT INFORMATION
  Report Type: Report from Study
  Country: FR (occurrence: FR)
  Receive Date: 20130516
  Receipt Date: 20140205
  Transmission Date: 20141002
  Serious: Yes (Other)
  Sender: FDA-Public Use
  Company Number: FR-CELGENEUS-056-21880-13050719

PATIENT
  Age: 71 Year
  Sex: Female

DRUGS (4)
  1. BLINDED REVLIMID [Suspect]
     Indication: DIFFUSE LARGE B-CELL LYMPHOMA
     Route: 048
     Dates: start: 20100326, end: 20100803
  2. SIMVASTATINE [Concomitant]
     Indication: PROPHYLAXIS
     Route: 065
     Dates: start: 199908
  3. TIMETAZIDINE [Concomitant]
     Indication: PROPHYLAXIS
     Route: 065
     Dates: start: 199908
  4. INSULIN [Concomitant]
     Indication: DIABETES MELLITUS
     Route: 065
     Dates: start: 199908

REACTIONS (1)
  - Endometrial adenocarcinoma [Recovered/Resolved]
